FAERS Safety Report 8815618 (Version 4)
Quarter: 2012Q4

REPORT INFORMATION
  Report Type: 
  Country: US (occurrence: US)
  Receive Date: 20120928
  Receipt Date: 20121231
  Transmission Date: 20130627
  Serious: Yes (Hospitalization, Other)
  Sender: FDA-Public Use
  Company Number: US-009507513-1205USA04597

PATIENT

DRUGS (4)
  1. FOSAMAX [Suspect]
     Indication: OSTEOPOROSIS
     Dosage: 10 mg, qd
     Route: 048
     Dates: start: 1995, end: 200110
  2. FOSAMAX [Suspect]
     Dosage: 70 mg, qw
     Route: 048
     Dates: start: 200111, end: 200802
  3. FOSAMAX [Suspect]
     Indication: OSTEOPOROSIS
     Dosage: 70 mg, qw
     Route: 048
     Dates: start: 200803, end: 2011
  4. ALENDRONATE SODIUM [Suspect]
     Dosage: 70 mg, qw

REACTIONS (14)
  - Intramedullary rod insertion [Unknown]
  - Intramedullary rod insertion [Unknown]
  - Anaemia [Unknown]
  - Limb operation [Unknown]
  - Elbow operation [Unknown]
  - Upper limb fracture [Unknown]
  - Upper limb fracture [Unknown]
  - Femur fracture [Recovering/Resolving]
  - Femur fracture [Unknown]
  - Anxiety [Unknown]
  - Hypertension [Unknown]
  - Hypercholesterolaemia [Unknown]
  - Osteopenia [Unknown]
  - Osteoarthritis [Unknown]
